FAERS Safety Report 18234173 (Version 2)
Quarter: 2020Q3

REPORT INFORMATION
  Report Type: Report from Study
  Country: MX (occurrence: MX)
  Receive Date: 20200904
  Receipt Date: 20200925
  Transmission Date: 20201103
  Serious: Yes (Life-Threatening)
  Sender: FDA-Public Use
  Company Number: NVSC2020MX243372

PATIENT
  Age: 58 Year
  Sex: Female
  Weight: 70 kg

DRUGS (1)
  1. ENTRESTO [Suspect]
     Active Substance: SACUBITRIL\VALSARTAN
     Indication: BLOOD PRESSURE INCREASED
     Dosage: 1 DF (200MG), Q12H, STARTED ALMOST A YEAR AGO
     Route: 048

REACTIONS (9)
  - Suicidal ideation [Unknown]
  - Nausea [Not Recovered/Not Resolved]
  - Nervousness [Not Recovered/Not Resolved]
  - Decreased appetite [Unknown]
  - Feeling abnormal [Not Recovered/Not Resolved]
  - Tremor [Not Recovered/Not Resolved]
  - Product use in unapproved indication [Unknown]
  - Vomiting [Unknown]
  - Anxiety [Not Recovered/Not Resolved]

NARRATIVE: CASE EVENT DATE: 202002
